FAERS Safety Report 7864202-4 (Version None)
Quarter: 2011Q4

REPORT INFORMATION
  Report Type: 
  Country: None (occurrence: None)
  Receive Date: 20111028
  Receipt Date: 20111025
  Transmission Date: 20120403
  Serious: Yes (Hospitalization, Other)
  Sender: FDA-Public Use
  Company Number: US-PFIZER INC-2011237892

PATIENT
  Sex: Female

DRUGS (4)
  1. CONRAY [Concomitant]
     Dosage: UNK
     Route: 037
     Dates: start: 20110307
  2. EFFEXOR [Concomitant]
     Indication: DEPRESSION
     Dosage: UNK
  3. PRAVASTATIN [Concomitant]
     Dosage: UNK
  4. DEPO-MEDROL [Suspect]
     Dosage: 40 MG, UNK
     Route: 037
     Dates: start: 20110307

REACTIONS (5)
  - INCORRECT ROUTE OF DRUG ADMINISTRATION [None]
  - MEMORY IMPAIRMENT [None]
  - CONVULSION [None]
  - HEADACHE [None]
  - GRAND MAL CONVULSION [None]
